FAERS Safety Report 24017786 (Version 2)
Quarter: 2024Q3

REPORT INFORMATION
  Report Type: Spontaneous
  Country: US (occurrence: US)
  Receive Date: 20240627
  Receipt Date: 20240711
  Transmission Date: 20241017
  Serious: Yes (Death, Hospitalization, Other)
  Sender: ZYDUS PHARM
  Company Number: US-CADILA HEALTHCARE LIMITED-US-ZYDUS-108622

PATIENT

DRUGS (1)
  1. BOSENTAN [Suspect]
     Active Substance: BOSENTAN
     Indication: Product used for unknown indication
     Dosage: 125 MILLIGRAM, BID
     Route: 048
     Dates: end: 20240617

REACTIONS (4)
  - Chronic obstructive pulmonary disease [Fatal]
  - Cardiac failure congestive [Fatal]
  - Pneumonia [Unknown]
  - Hospice care [Unknown]

NARRATIVE: CASE EVENT DATE: 20240617
